FAERS Safety Report 7516372-5 (Version None)
Quarter: 2011Q2

REPORT INFORMATION
  Report Type: 
  Country: None (occurrence: None)
  Receive Date: 20110601
  Receipt Date: 20110518
  Transmission Date: 20111010
  Serious: Yes (Hospitalization, Other)
  Sender: FDA-Public Use
  Company Number: GB-ELI_LILLY_AND_COMPANY-GB201104007752

PATIENT

DRUGS (6)
  1. DIAMORPHINE [Concomitant]
  2. DIAMORPHINE [Concomitant]
  3. FLUOXETINE [Suspect]
     Dosage: 40 MG, QD
     Route: 064
  4. FLUOXETINE [Suspect]
     Dosage: 20 MG, QD
     Route: 064
  5. FLUOXETINE [Suspect]
     Dosage: 40 MG, QD
     Route: 064
  6. FLUOXETINE [Suspect]
     Indication: DEPRESSION
     Dosage: 20 MG, QD
     Route: 064

REACTIONS (12)
  - CEREBRAL DISORDER [None]
  - FEELING JITTERY [None]
  - OXYGEN SATURATION DECREASED [None]
  - DYSKINESIA [None]
  - MUSCLE SPASTICITY [None]
  - POSTURE ABNORMAL [None]
  - DRUG EXPOSURE DURING PREGNANCY [None]
  - IRRITABILITY [None]
  - CONVULSION [None]
  - HYPERTONIA [None]
  - NEUROLOGICAL SYMPTOM [None]
  - RESPIRATORY DISORDER [None]
